FAERS Safety Report 6103223-9 (Version None)
Quarter: 2009Q1

REPORT INFORMATION
  Report Type: 
  Country: None (occurrence: None)
  Receive Date: 20090305
  Receipt Date: 20090303
  Transmission Date: 20090719
  Serious: Yes (Death, Other)
  Sender: FDA-Public Use
  Company Number: US-CELGENEUS-163-21880-08121084

PATIENT
  Sex: Male

DRUGS (2)
  1. REVLIMID [Suspect]
     Indication: MULTIPLE MYELOMA
     Route: 048
     Dates: start: 20080812
  2. REVLIMID [Suspect]
     Route: 048
     Dates: start: 20060727, end: 20070201

REACTIONS (3)
  - HYPERCALCAEMIA [None]
  - MULTIPLE MYELOMA [None]
  - RENAL FAILURE [None]
